FAERS Safety Report 19471508 (Version 1)
Quarter: 2021Q2

REPORT INFORMATION
  Report Type: Report from Study
  Country: CR (occurrence: CR)
  Receive Date: 20210628
  Receipt Date: 20210628
  Transmission Date: 20210717
  Serious: Yes (Disabling)
  Sender: FDA-Public Use
  Company Number: NVSC2020CR016554

PATIENT
  Age: 40 Year
  Sex: Female

DRUGS (3)
  1. SCAPHO [Suspect]
     Active Substance: SECUKINUMAB
     Indication: ANKYLOSING SPONDYLITIS
     Dosage: 150 MG, UNKNOWN
     Route: 065
     Dates: start: 20180701
  2. METHOTREXATE. [Concomitant]
     Active Substance: METHOTREXATE
     Indication: PRODUCT USED FOR UNKNOWN INDICATION
     Dosage: UNK
     Route: 065
  3. SCAPHO [Interacting]
     Active Substance: SECUKINUMAB
     Dosage: 150 MG, QMO
     Route: 058
     Dates: start: 20180712

REACTIONS (10)
  - Fall [Unknown]
  - Pain [Recovered/Resolved]
  - Weight increased [Not Recovered/Not Resolved]
  - Spinal pain [Not Recovered/Not Resolved]
  - Anxiety [Unknown]
  - Headache [Recovered/Resolved]
  - Neck pain [Recovered/Resolved]
  - Sleep disorder due to general medical condition, insomnia type [Not Recovered/Not Resolved]
  - Fatigue [Not Recovered/Not Resolved]
  - Arthralgia [Not Recovered/Not Resolved]

NARRATIVE: CASE EVENT DATE: 20200805
